FAERS Safety Report 14470949 (Version 3)
Quarter: 2020Q1

REPORT INFORMATION
  Report Type: Other
  Country: US (occurrence: US)
  Receive Date: 20180131
  Receipt Date: 20200126
  Transmission Date: 20200409
  Serious: No
  Sender: FDA-Public Use
  Company Number: US-ACORDA-ACO_145211_2017

PATIENT
  Age: 52 Year
  Sex: Male

DRUGS (13)
  1. AVONEX [Suspect]
     Active Substance: INTERFERON BETA-1A
     Indication: FATIGUE
     Dosage: 30 MCG, WEEKLY
     Route: 030
     Dates: start: 20151124
  2. AVONEX [Suspect]
     Active Substance: INTERFERON BETA-1A
     Dosage: UNK UNK, WEEKLY
     Route: 030
     Dates: start: 20161124
  3. AMPYRA [Suspect]
     Active Substance: DALFAMPRIDINE
     Indication: GAIT DISTURBANCE
     Dosage: 10 MG, BID
     Route: 048
     Dates: start: 20171104, end: 20181114
  4. AVONEX [Suspect]
     Active Substance: INTERFERON BETA-1A
     Dosage: 30 MICROGRAM, WEEKLY
     Route: 030
     Dates: start: 20171026
  5. AVONEX [Suspect]
     Active Substance: INTERFERON BETA-1A
     Dosage: 0.5 MCG, WEEKLY
     Route: 030
  6. FLUTICASONE. [Concomitant]
     Active Substance: FLUTICASONE
     Indication: PRODUCT USED FOR UNKNOWN INDICATION
     Dosage: UNK
     Route: 065
  7. FEXOFENADINE [Concomitant]
     Active Substance: FEXOFENADINE HYDROCHLORIDE
     Indication: PRODUCT USED FOR UNKNOWN INDICATION
     Dosage: UNK
     Route: 065
  8. AMPYRA [Suspect]
     Active Substance: DALFAMPRIDINE
     Dosage: 10 MG, Q 12 HRS
     Route: 065
  9. DALFAMPRIDINE. [Suspect]
     Active Substance: DALFAMPRIDINE
     Indication: PRODUCT USED FOR UNKNOWN INDICATION
     Dosage: 10 MILLIGRAM, BID
     Route: 048
     Dates: start: 20181115
  10. AVONEX [Suspect]
     Active Substance: INTERFERON BETA-1A
     Indication: MULTIPLE SCLEROSIS
     Dosage: 30 MCG, WEEKLY
     Route: 030
     Dates: start: 2004
  11. AVONEX [Suspect]
     Active Substance: INTERFERON BETA-1A
     Dosage: 30 MICROGRAM, WEEKLY
     Route: 030
     Dates: start: 20171104
  12. MODAFINIL. [Concomitant]
     Active Substance: MODAFINIL
     Indication: FATIGUE
     Dosage: UNK
     Route: 065
     Dates: start: 20181002
  13. AMPYRA [Suspect]
     Active Substance: DALFAMPRIDINE
     Indication: MULTIPLE SCLEROSIS
     Dosage: 10 MG, BID
     Route: 048

REACTIONS (9)
  - Asthenia [Recovering/Resolving]
  - Fall [Not Recovered/Not Resolved]
  - Seasonal allergy [Recovering/Resolving]
  - Therapy cessation [Recovered/Resolved]
  - Therapy cessation [Recovered/Resolved]
  - Headache [Recovering/Resolving]
  - Mobility decreased [Not Recovered/Not Resolved]
  - Condition aggravated [Recovering/Resolving]
  - Multiple sclerosis [Not Recovered/Not Resolved]

NARRATIVE: CASE EVENT DATE: 20171214
